FAERS Safety Report 10408679 (Version 2)
Quarter: 2014Q3

REPORT INFORMATION
  Report Type: Report from Study
  Country: CN (occurrence: CN)
  Receive Date: 20140826
  Receipt Date: 20140903
  Transmission Date: 20150326
  Serious: Yes (Other)
  Sender: FDA-Public Use
  Company Number: CN-ROCHE-1454644

PATIENT
  Age: 50 Year
  Sex: Female

DRUGS (2)
  1. HERCEPTIN [Suspect]
     Active Substance: TRASTUZUMAB
     Indication: BREAST CANCER
     Dosage: INITIAL DOSAGE WAS 440MG, FORM STRENGTH: 440 MG/20ML.
     Route: 041
     Dates: start: 20131211
  2. DOCETAXEL [Suspect]
     Active Substance: DOCETAXEL
     Indication: BREAST CANCER
     Route: 065

REACTIONS (6)
  - Eye swelling [Recovering/Resolving]
  - Herpes virus infection [Recovering/Resolving]
  - Bone marrow failure [Unknown]
  - Fatigue [Recovering/Resolving]
  - Swelling face [Recovering/Resolving]
  - Wrong technique in drug usage process [Unknown]

NARRATIVE: CASE EVENT DATE: 201401
